FAERS Safety Report 6821646-7 (Version None)
Quarter: 2010Q3

REPORT INFORMATION
  Report Type: 
  Country: None (occurrence: None)
  Receive Date: 20100707
  Receipt Date: 20090607
  Transmission Date: 20110219
  Serious: Yes (Other)
  Sender: FDA-Public Use
  Company Number: US-PFIZER INC-2009150703

PATIENT
  Sex: Male
  Weight: 108.9 kg

DRUGS (7)
  1. ZOLOFT [Suspect]
     Indication: DEPRESSION
     Dosage: 50 MG, 1X/DAY
     Route: 048
     Dates: start: 20081201, end: 20090109
  2. ZOLOFT [Suspect]
     Indication: ANXIETY
  3. AMLODIPINE BESYLATE AND BENAZEPRIL HCL [Concomitant]
     Dosage: UNK
     Route: 048
  4. ZOCOR [Concomitant]
     Dosage: UNK
     Route: 048
  5. LORAZEPAM [Concomitant]
     Route: 048
  6. LOPRESSOR [Concomitant]
     Dosage: UNK
     Route: 048
  7. ACETYLSALICYLIC ACID [Concomitant]
     Dosage: UNK
     Route: 048

REACTIONS (10)
  - ANXIETY [None]
  - ASTHENIA [None]
  - DEPRESSION [None]
  - DISTURBANCE IN ATTENTION [None]
  - EMOTIONAL DISORDER [None]
  - HYPERSOMNIA [None]
  - MOTOR DYSFUNCTION [None]
  - MUSCLE DISORDER [None]
  - SENSATION OF HEAVINESS [None]
  - SUICIDE ATTEMPT [None]
